FAERS Safety Report 22345208 (Version 2)
Quarter: 2023Q2

REPORT INFORMATION
  Report Type: Spontaneous
  Country: US (occurrence: US)
  Receive Date: 20230519
  Receipt Date: 20230522
  Transmission Date: 20230721
  Serious: Yes (Death)
  Sender: FDA-Public Use
  Company Number: US-BAUSCH-BL-2023-007349

PATIENT
  Age: 36 Year
  Sex: Female

DRUGS (9)
  1. METRONIDAZOLE [Suspect]
     Active Substance: METRONIDAZOLE
     Indication: Evidence based treatment
     Route: 065
     Dates: start: 2021
  2. DEXAMETHASONE [Suspect]
     Active Substance: DEXAMETHASONE
     Indication: COVID-19 pneumonia
     Route: 065
     Dates: start: 2021, end: 2021
  3. CEFEPIME [Suspect]
     Active Substance: CEFEPIME HYDROCHLORIDE
     Indication: Evidence based treatment
     Route: 042
     Dates: start: 2021
  4. VANCOMYCIN [Suspect]
     Active Substance: VANCOMYCIN
     Indication: Evidence based treatment
     Route: 065
     Dates: start: 2021
  5. MICAFUNGIN [Suspect]
     Active Substance: MICAFUNGIN SODIUM
     Indication: Evidence based treatment
     Route: 065
     Dates: start: 2021
  6. TOCILIZUMAB [Suspect]
     Active Substance: TOCILIZUMAB
     Indication: COVID-19 pneumonia
     Dosage: ONE DOSE
     Route: 065
     Dates: start: 2021, end: 2021
  7. OXYGEN [Concomitant]
     Active Substance: OXYGEN
     Indication: Oxygen therapy
     Route: 045
     Dates: start: 2021
  8. OXYGEN [Concomitant]
     Active Substance: OXYGEN
     Dosage: OXYGEN REQUIREMENT ESCALATED TO 60 LITERS BY HIGH-FLOW NASAL CANNULA
     Route: 045
     Dates: start: 2021
  9. REMDESIVIR [Concomitant]
     Active Substance: REMDESIVIR
     Indication: COVID-19 pneumonia
     Route: 042
     Dates: start: 2021, end: 2021

REACTIONS (2)
  - Pulmonary trichosporonosis [Fatal]
  - Pneumonia fungal [Fatal]

NARRATIVE: CASE EVENT DATE: 20210101
